FAERS Safety Report 18655209 (Version 2)
Quarter: 2021Q1

REPORT INFORMATION
  Report Type: Report from Study
  Country: CR (occurrence: CR)
  Receive Date: 20201223
  Receipt Date: 20210107
  Transmission Date: 20210419
  Serious: Yes (Other)
  Sender: FDA-Public Use
  Company Number: NVSC2020CR335767

PATIENT
  Sex: Female
  Weight: 72.56 kg

DRUGS (2)
  1. EXFORGE HCT [Suspect]
     Active Substance: AMLODIPINE BESYLATE\HYDROCHLOROTHIAZIDE\VALSARTAN
     Indication: HYPERTENSION
     Dosage: (10/160/12.5) MG, STARTED 10 YEARS AGO
     Route: 065
  2. EXFORGE HCT [Suspect]
     Active Substance: AMLODIPINE BESYLATE\HYDROCHLOROTHIAZIDE\VALSARTAN
     Dosage: 1 DF, QD (10/160/12.5) MG, AT NIGHT, STARTED JUST AFTER THE PANCREAS CANCER SURGERY
     Route: 065
     Dates: start: 2011

REACTIONS (12)
  - Visual impairment [Unknown]
  - Blood pressure increased [Unknown]
  - Asthenia [Unknown]
  - Ear disorder [Unknown]
  - Dizziness postural [Unknown]
  - Anxiety [Unknown]
  - Fear of crowded places [Unknown]
  - Pancreatic carcinoma [Not Recovered/Not Resolved]
  - Hypotension [Unknown]
  - Wrong technique in product usage process [Unknown]
  - Finger deformity [Unknown]
  - Depression [Unknown]
